FAERS Safety Report 4317353-5 (Version None)
Quarter: 2004Q1

REPORT INFORMATION
  Report Type: 
  Country: None (occurrence: None)
  Receive Date: 20040305
  Receipt Date: 20040107
  Transmission Date: 20041129
  Serious: No
  Sender: FDA-Public Use
  Company Number: US-SHR-04-019546

PATIENT
  Sex: Male

DRUGS (1)
  1. CAMPATH [Suspect]
     Indication: CHRONIC LYMPHOCYTIC LEUKAEMIA
     Dosage: ONE COURSE
     Dates: start: 20031001

REACTIONS (4)
  - BLISTER [None]
  - RASH MACULO-PAPULAR [None]
  - SKIN ULCER [None]
  - URTICARIA [None]
